FAERS Safety Report 8788397 (Version 1)
Quarter: 2012Q4

REPORT INFORMATION
  Report Type: 
  Country: US (occurrence: US)
  Receive Date: 20120914
  Receipt Date: 20120914
  Transmission Date: 20130627
  Serious: No
  Sender: FDA-Public Use
  Company Number: US-VERTEX PHARMACEUTICAL INC.-AE-2012-010495

PATIENT
  Age: 54 Year
  Sex: Male
  Weight: 125 kg

DRUGS (11)
  1. INCIVEK [Suspect]
     Indication: HEPATITIS C
     Route: 048
     Dates: start: 20120625
  2. PEGASYS [Concomitant]
     Indication: HEPATITIS C
     Route: 058
     Dates: start: 20120625
  3. RIBAVIRIN [Concomitant]
     Indication: HEPATITIS C
     Route: 048
     Dates: start: 20120625
  4. LOTREL [Concomitant]
  5. LIPITOR [Concomitant]
  6. METOPROLOL [Concomitant]
  7. ATENOLOL [Concomitant]
  8. AMBIEN [Concomitant]
  9. XANAX [Concomitant]
  10. FOLIC ACID [Concomitant]
  11. ASPIRIN [Concomitant]

REACTIONS (1)
  - Blood pressure decreased [Recovered/Resolved]
